FAERS Safety Report 7880599-3 (Version None)
Quarter: 2011Q4

REPORT INFORMATION
  Report Type: 
  Country: None (occurrence: None)
  Receive Date: 20111101
  Receipt Date: 20100910
  Transmission Date: 20120403
  Serious: No
  Sender: FDA-Public Use
  Company Number: US-BAYER-201033601NA

PATIENT
  Age: 63 Year
  Sex: Female

DRUGS (6)
  1. SIMVASTATIN [Concomitant]
  2. OMEPRAZOLE [Concomitant]
  3. ULTRAVIST 240 [Suspect]
     Indication: COMPUTERISED TOMOGRAM
     Dosage: 200 ML, ONCE
     Route: 042
     Dates: start: 20101009, end: 20101009
  4. LISINOPRIL [Concomitant]
  5. LEXAPRO [Concomitant]
  6. AMLODIPINE [Concomitant]

REACTIONS (1)
  - CHEST DISCOMFORT [None]
